FAERS Safety Report 12081048 (Version 3)
Quarter: 2016Q1

REPORT INFORMATION
  Report Type: Spontaneous
  Country: BE (occurrence: BE)
  Receive Date: 20160216
  Receipt Date: 20160330
  Transmission Date: 20160526
  Serious: Yes (Death)
  Sender: FDA-Public Use
  Company Number: BE-CELGENE-BEL-2016021650

PATIENT
  Sex: Female

DRUGS (2)
  1. IBRUTINIB [Concomitant]
     Active Substance: IBRUTINIB
     Indication: DIFFUSE LARGE B-CELL LYMPHOMA
     Route: 065
  2. REVLIMID [Suspect]
     Active Substance: LENALIDOMIDE
     Indication: CENTRAL NERVOUS SYSTEM LYMPHOMA
     Dosage: 25 MILLIGRAM
     Route: 048
     Dates: start: 20150615, end: 20150705

REACTIONS (2)
  - No therapeutic response [Unknown]
  - Central nervous system lymphoma [Fatal]

NARRATIVE: CASE EVENT DATE: 201510
